FAERS Safety Report 11129903 (Version 3)
Quarter: 2015Q3

REPORT INFORMATION
  Report Type: Report from Study
  Country: CH (occurrence: CH)
  Receive Date: 20150521
  Receipt Date: 20150706
  Transmission Date: 20151125
  Serious: Yes (Hospitalization)
  Sender: FDA-Public Use
  Company Number: PHHO2015CH009184

PATIENT
  Age: 2 Year
  Sex: Male
  Weight: 12.3 kg

DRUGS (8)
  1. PIPERACILLIN/TAZOBACTAM [Concomitant]
     Active Substance: PIPERACILLIN SODIUM\TAZOBACTAM SODIUM
     Dosage: UNK
     Route: 065
     Dates: start: 20140930
  2. PIPERACILLIN/TAZOBACTAM [Concomitant]
     Active Substance: PIPERACILLIN SODIUM\TAZOBACTAM SODIUM
     Indication: PNEUMONIA
     Dosage: 1000 MG, TID
     Route: 065
     Dates: start: 20140926, end: 20140930
  3. CEFTRIAXONE. [Concomitant]
     Active Substance: CEFTRIAXONE
     Indication: PNEUMONIA
     Dosage: 100 MG, QD
     Route: 065
     Dates: start: 20140930
  4. DAFALGAN [Concomitant]
     Active Substance: ACETAMINOPHEN
     Indication: PNEUMONIA
     Dosage: 150 MG, PRN
     Route: 065
     Dates: start: 20140921
  5. ACZ885 [Suspect]
     Active Substance: CANAKINUMAB
     Indication: CRYOPYRIN ASSOCIATED PERIODIC SYNDROME
     Dosage: 8 MG/KG
     Route: 058
     Dates: start: 20130501
  6. ACZ885 [Suspect]
     Active Substance: CANAKINUMAB
     Dosage: UNK
     Route: 058
     Dates: start: 20140930
  7. CEFTRIAXONE. [Concomitant]
     Active Substance: CEFTRIAXONE
     Dosage: UNK
     Route: 065
  8. DAFALGAN [Concomitant]
     Active Substance: ACETAMINOPHEN
     Dosage: UNK
     Route: 065
     Dates: start: 20140930

REACTIONS (1)
  - Encephalitis [Recovered/Resolved]

NARRATIVE: CASE EVENT DATE: 20140928
